FAERS Safety Report 12957090 (Version 2)
Quarter: 2016Q4

REPORT INFORMATION
  Report Type: Spontaneous
  Country: JP (occurrence: JP)
  Receive Date: 20161118
  Receipt Date: 20161215
  Transmission Date: 20170207
  Serious: Yes (Disabling)
  Sender: FDA-Public Use
  Company Number: PHJP2016JP027672

PATIENT
  Age: 43 Year
  Sex: Female

DRUGS (5)
  1. OXAROL [Concomitant]
     Active Substance: MAXACALCITOL
     Indication: PUSTULAR PSORIASIS
     Dosage: ADEQUATE AMOUNT, QD
     Route: 061
     Dates: start: 20160308
  2. DERMOVATE [Concomitant]
     Active Substance: CLOBETASOL
     Indication: PUSTULAR PSORIASIS
     Dosage: ADEQUATE AMOUNT, QD
     Route: 061
     Dates: start: 20160308
  3. COSENTYX [Suspect]
     Active Substance: SECUKINUMAB
     Indication: PUSTULAR PSORIASIS
     Dosage: 300 MG, QW
     Route: 058
     Dates: start: 20160308, end: 20160405
  4. COSENTYX [Suspect]
     Active Substance: SECUKINUMAB
     Dosage: 300 MG, QMO
     Route: 058
     Dates: start: 20160502, end: 20160927
  5. DERMOVATE [Concomitant]
     Active Substance: CLOBETASOL
     Indication: PUSTULAR PSORIASIS
     Dosage: ADEQUATE AMOUNT, QD
     Route: 061
     Dates: start: 20160308

REACTIONS (6)
  - Pyrexia [Recovered/Resolved]
  - Oropharyngeal pain [Recovered/Resolved]
  - Tongue discolouration [Recovered/Resolved]
  - Mouth ulceration [Recovered/Resolved]
  - Oesophageal ulcer [Recovered/Resolved]
  - Pharyngitis [Recovered/Resolved]

NARRATIVE: CASE EVENT DATE: 20160927
